FAERS Safety Report 16866141 (Version 1)
Quarter: 2019Q3

REPORT INFORMATION
  Report Type: Spontaneous
  Country: US (occurrence: US)
  Receive Date: 20190930
  Receipt Date: 20190930
  Transmission Date: 20191005
  Serious: No
  Sender: FDA-Public Use
  Company Number: US-ALLERGAN-1927225US

PATIENT
  Age: 65 Year
  Sex: Female

DRUGS (7)
  1. VRAYLAR [Suspect]
     Active Substance: CARIPRAZINE
     Dosage: 4.5 MG
     Route: 048
  2. VRAYLAR [Suspect]
     Active Substance: CARIPRAZINE
     Dosage: 3 MG
     Route: 048
  3. VRAYLAR [Suspect]
     Active Substance: CARIPRAZINE
     Indication: BIPOLAR DISORDER
     Dosage: 6 MG
     Route: 048
  4. GABAPENTIN. [Concomitant]
     Active Substance: GABAPENTIN
     Dosage: UNK, TID
     Route: 048
  5. VRAYLAR [Suspect]
     Active Substance: CARIPRAZINE
     Dosage: 1.5 MG
     Route: 048
     Dates: start: 20190314
  6. BUPROPION. [Concomitant]
     Active Substance: BUPROPION
     Dosage: 150 MG
     Route: 048
  7. LAMOTRIGINE. [Concomitant]
     Active Substance: LAMOTRIGINE
     Dosage: 200MG, 2-1.5
     Route: 048

REACTIONS (2)
  - Drug ineffective [Unknown]
  - Depression [Not Recovered/Not Resolved]

NARRATIVE: CASE EVENT DATE: 2019
